FAERS Safety Report 7950128-4 (Version None)
Quarter: 2011Q4

REPORT INFORMATION
  Report Type: 
  Country: None (occurrence: None)
  Receive Date: 20111130
  Receipt Date: 20111123
  Transmission Date: 20120403
  Serious: Yes (Hospitalization)
  Sender: FDA-Public Use
  Company Number: US-JNJFOC-20111111249

PATIENT
  Sex: Female
  Weight: 62.6 kg

DRUGS (4)
  1. SIMPONI [Suspect]
     Indication: RHEUMATOID ARTHRITIS
     Route: 058
     Dates: start: 20100201, end: 20100501
  2. METHOTREXATE [Concomitant]
     Indication: RHEUMATOID ARTHRITIS
     Route: 048
     Dates: start: 20110101
  3. SIMPONI [Suspect]
     Route: 058
     Dates: start: 20111101, end: 20111101
  4. SIMPONI [Suspect]
     Route: 058
     Dates: start: 20111101, end: 20111101

REACTIONS (9)
  - WEIGHT DECREASED [None]
  - BLOOD POTASSIUM DECREASED [None]
  - RHEUMATOID ARTHRITIS [None]
  - PYREXIA [None]
  - CHILLS [None]
  - DRUG DOSE OMISSION [None]
  - LIVER ABSCESS [None]
  - DEVICE MALFUNCTION [None]
  - HYPOTENSION [None]
